FAERS Safety Report 21657291 (Version 1)
Quarter: 2022Q4

REPORT INFORMATION
  Report Type: Spontaneous
  Country: US (occurrence: US)
  Receive Date: 20221129
  Receipt Date: 20221129
  Transmission Date: 20230112
  Serious: Yes (Life-Threatening, Hospitalization, Other)
  Sender: FDA-Public Use
  Company Number: US-PFIZER INC-PV202200110738

PATIENT
  Age: 61 Year
  Sex: Female

DRUGS (3)
  1. GEMCITABINE HYDROCHLORIDE [Suspect]
     Active Substance: GEMCITABINE HYDROCHLORIDE
     Indication: Lymphadenopathy
     Dosage: 1000 MG/M2, ON DAYS 1, 8, AND 15 OF A 28-DAY CYCLE
  2. GEMCITABINE HYDROCHLORIDE [Suspect]
     Active Substance: GEMCITABINE HYDROCHLORIDE
     Indication: Skin lesion
     Dosage: 750 MG/M2, EVERY OTHER WEEK
  3. GEMCITABINE HYDROCHLORIDE [Suspect]
     Active Substance: GEMCITABINE HYDROCHLORIDE
     Indication: Cutaneous T-cell lymphoma

REACTIONS (5)
  - Staphylococcal bacteraemia [Unknown]
  - Neutropenia [Unknown]
  - Sepsis [Unknown]
  - Off label use [Unknown]
  - Off label use [Unknown]
